FAERS Safety Report 23703049 (Version 1)
Quarter: 2024Q2

REPORT INFORMATION
  Report Type: Report from Study
  Country: US (occurrence: US)
  Receive Date: 20240403
  Receipt Date: 20240403
  Transmission Date: 20240715
  Serious: Yes (Other)
  Sender: FDA-Public Use
  Company Number: US-AUROBINDO-AUR-APL-2024-014388

PATIENT
  Age: 70 Year
  Sex: Female

DRUGS (1)
  1. CLOBETASOL [Suspect]
     Active Substance: CLOBETASOL
     Indication: Immunosuppressant drug therapy
     Dosage: UNK
     Route: 061

REACTIONS (2)
  - Epstein-Barr virus associated lymphoma [Unknown]
  - Papule [Unknown]
